FAERS Safety Report 4317087-7 (Version None)
Quarter: 2004Q1

REPORT INFORMATION
  Report Type: 
  Country: None (occurrence: None)
  Receive Date: 20040312
  Receipt Date: 20040224
  Transmission Date: 20041129
  Serious: Yes (Death)
  Sender: FDA-Public Use
  Company Number: 2004IC000039

PATIENT
  Age: 77 Year
  Sex: Female

DRUGS (9)
  1. FLUOROURACIL [Suspect]
     Indication: GUM NEOPLASM MALIGNANT STAGE UNSPECIFIED
     Dosage: 1500 MG; UNKNOWN; INTRA-ARTERIAL
     Route: 013
     Dates: start: 20021127, end: 20021127
  2. CISPLATIN [Suspect]
     Indication: GUM NEOPLASM MALIGNANT STAGE UNSPECIFIED
     Dosage: 100 MG; UNKNOWN; INTRA-ARTERIAL
     Route: 013
     Dates: start: 20021127, end: 20021127
  3. MEYLON [Concomitant]
  4. SOLU-MEDROL [Concomitant]
  5. NOVO PROTAMIN SULFATE [Concomitant]
  6. LASIX [Concomitant]
  7. NASEA [Concomitant]
  8. HEPARIN [Concomitant]
  9. DETOXOL [Concomitant]

REACTIONS (6)
  - DISSEMINATED INTRAVASCULAR COAGULATION [None]
  - DRUG INEFFECTIVE [None]
  - MELAENA [None]
  - NEUTROPENIA [None]
  - PYREXIA [None]
  - SEPTIC SHOCK [None]
